FAERS Safety Report 10379036 (Version 1)
Quarter: 2014Q3

REPORT INFORMATION
  Report Type: Spontaneous
  Country: FR (occurrence: None)
  Receive Date: 20140808
  Receipt Date: 20140808
  Transmission Date: 20150326
  Serious: Yes (Hospitalization)
  Sender: FDA-Public Use
  Company Number: 7310974

PATIENT
  Age: 85 Year
  Sex: Female

DRUGS (1)
  1. LEVOTHYROXINE [Suspect]
     Active Substance: LEVOTHYROXINE
     Indication: PRODUCT USED FOR UNKNOWN INDICATION
     Route: 048

REACTIONS (4)
  - Condition aggravated [None]
  - Acute pulmonary oedema [None]
  - Atrial fibrillation [None]
  - Hyperthyroidism [None]

NARRATIVE: CASE EVENT DATE: 20140601
